FAERS Safety Report 15499078 (Version 1)
Quarter: 2018Q4

REPORT INFORMATION
  Report Type: Spontaneous
  Country: US (occurrence: US)
  Receive Date: 20181006
  Receipt Date: 20181006
  Transmission Date: 20190205
  Serious: Yes (Other)
  Sender: FDA-Public Use
  Company Number: None

PATIENT
  Age: 31 Year
  Sex: Female
  Weight: 78.75 kg

DRUGS (9)
  1. XYREM [Suspect]
     Active Substance: SODIUM OXYBATE
     Indication: NARCOLEPSY
     Dosage: 360 MI AT BEDTIME ORAL
     Route: 048
     Dates: start: 20180928, end: 20181004
  2. MODAFINIL. [Concomitant]
     Active Substance: MODAFINIL
  3. IMODIUM [Concomitant]
     Active Substance: LOPERAMIDE HYDROCHLORIDE
  4. ALEVE [Concomitant]
     Active Substance: NAPROXEN SODIUM
  5. ARMOUR THYROID [Concomitant]
     Active Substance: THYROID, PORCINE
  6. METADATE CD [Concomitant]
     Active Substance: METHYLPHENIDATE HYDROCHLORIDE
  7. LAMOTRIGINE. [Concomitant]
     Active Substance: LAMOTRIGINE
  8. MAGNESIUM GLYCINATE [Concomitant]
     Active Substance: MAGNESIUM GLYCINATE
  9. NADOLOL. [Concomitant]
     Active Substance: NADOLOL

REACTIONS (11)
  - Muscle spasms [None]
  - Dizziness [None]
  - Diarrhoea [None]
  - Tremor [None]
  - Anxiety [None]
  - Chest pain [None]
  - Nausea [None]
  - Crying [None]
  - Hyperhidrosis [None]
  - Vomiting [None]
  - Hyperventilation [None]

NARRATIVE: CASE EVENT DATE: 20181005
